FAERS Safety Report 7402483-1 (Version None)
Quarter: 2011Q2

REPORT INFORMATION
  Report Type: 
  Country: None (occurrence: None)
  Receive Date: 20110408
  Receipt Date: 20110324
  Transmission Date: 20111010
  Serious: Yes (Other)
  Sender: FDA-Public Use
  Company Number: PHHY2009JP25335

PATIENT
  Sex: Female
  Weight: 48 kg

DRUGS (16)
  1. PACLITAXEL [Suspect]
     Indication: BREAST CANCER
     Dosage: 80 MG, UNK
     Route: 042
     Dates: end: 20081212
  2. RESTAMIN [Concomitant]
     Indication: PROPHYLAXIS
     Dosage: 30 MG, UNK
     Route: 048
     Dates: start: 20080513
  3. DEXART [Concomitant]
     Dosage: 6.6 MG, UNK
     Route: 042
     Dates: start: 20100302, end: 20100518
  4. DECADRON [Concomitant]
     Dosage: 8 MG, UNK
     Route: 041
  5. DECADRON [Concomitant]
     Dosage: 8 MG, UNK
     Route: 042
     Dates: end: 20100216
  6. GASTER [Concomitant]
     Indication: PROPHYLAXIS
     Dosage: 20 MG, UNK
     Route: 041
     Dates: start: 20080513
  7. EPIRUBICIN HYDROCHLORIDE [Suspect]
     Indication: BREAST CANCER
     Dosage: 84 MG, UNK
     Route: 042
     Dates: start: 20071211, end: 20080408
  8. PACLITAXEL [Suspect]
     Dosage: 80 MG, UNK
     Route: 042
     Dates: start: 20090106, end: 20100518
  9. ENDOXAN [Suspect]
     Indication: BREAST CANCER
     Dosage: 500 MG, UNK
     Route: 042
     Dates: start: 20071211, end: 20080408
  10. CGS 20267 [Suspect]
     Indication: BREAST CANCER
     Dosage: 2.5 MG, QD
     Route: 048
     Dates: start: 20071129
  11. GASTER [Concomitant]
     Dosage: 20 MG, UNK
     Route: 042
  12. DECADRON [Concomitant]
     Indication: PROPHYLAXIS
     Dosage: 24 MG, UNK
     Route: 041
     Dates: start: 20071211
  13. NEUTROGIN [Concomitant]
     Dosage: 50 UG, UNK
     Route: 030
     Dates: start: 20071225, end: 20080328
  14. ZOMETA [Suspect]
     Indication: BREAST CANCER
     Dosage: 4MG EVERY FOUR WEEKS
     Route: 042
     Dates: start: 20071212, end: 20091215
  15. RAMELTEON [Concomitant]
     Dosage: 0.3 MG, UNK
     Route: 041
     Dates: start: 20071211, end: 20080408
  16. GASTER [Concomitant]
     Dosage: 20 MG, UNK
     Route: 042
     Dates: end: 20100518

REACTIONS (6)
  - OSTEOMYELITIS [None]
  - WHITE BLOOD CELL COUNT DECREASED [None]
  - SWELLING [None]
  - PAIN IN JAW [None]
  - HAEMORRHAGE [None]
  - OSTEONECROSIS OF JAW [None]
